FAERS Safety Report 8832135 (Version 1)
Quarter: 2012Q4

REPORT INFORMATION
  Report Type: 
  Country: US (occurrence: US)
  Receive Date: 20121009
  Receipt Date: 20121009
  Transmission Date: 20130627
  Serious: Yes (Death, Other)
  Sender: FDA-Public Use
  Company Number: US-ROCHE-1131231

PATIENT
  Age: 72 Year
  Sex: Female
  Weight: 60.84 kg

DRUGS (9)
  1. RITUXAN [Suspect]
     Indication: IDIOPATHIC THROMBOCYTOPENIC PURPURA
     Route: 065
     Dates: start: 20010302
  2. RITUXAN [Suspect]
     Indication: OFF LABEL USE
  3. RITUXAN [Suspect]
     Indication: THROMBOCYTOPENIA
  4. CARDIZEM [Concomitant]
     Route: 065
  5. FLAGYL [Concomitant]
     Route: 065
  6. BENADRYL [Concomitant]
  7. TYLENOL [Concomitant]
  8. IMODIUM [Concomitant]
  9. PHENERGAN [Concomitant]
     Route: 048

REACTIONS (11)
  - Idiopathic thrombocytopenic purpura [Fatal]
  - Rectal haemorrhage [Unknown]
  - Pseudomembranous colitis [Unknown]
  - Nausea [Unknown]
  - Leukocytosis [Unknown]
  - Pyrexia [Unknown]
  - Vomiting [Unknown]
  - Fatigue [Unknown]
  - Ecchymosis [Unknown]
  - Diarrhoea [Recovered/Resolved]
  - Epistaxis [Recovered/Resolved]
